FAERS Safety Report 25565509 (Version 1)
Quarter: 2025Q3

REPORT INFORMATION
  Report Type: Spontaneous
  Country: JP (occurrence: JP)
  Receive Date: 20250716
  Receipt Date: 20250716
  Transmission Date: 20251020
  Serious: Yes (Hospitalization)
  Sender: JOHNSON AND JOHNSON
  Company Number: JP-JNJFOC-20250718523

PATIENT
  Age: 58 Year
  Sex: Female

DRUGS (1)
  1. DARATUMUMAB [Suspect]
     Active Substance: DARATUMUMAB
     Indication: Amyloidosis
     Route: 058
     Dates: start: 2023

REACTIONS (5)
  - Rash [Unknown]
  - Blister [Unknown]
  - Erythema [Unknown]
  - Lip erosion [Unknown]
  - Drug eruption [Unknown]

NARRATIVE: CASE EVENT DATE: 20250501
